FAERS Safety Report 6466272-7 (Version None)
Quarter: 2009Q4

REPORT INFORMATION
  Report Type: 
  Country: None (occurrence: None)
  Receive Date: 20091202
  Receipt Date: 20091124
  Transmission Date: 20100525
  Serious: Yes (Disabling)
  Sender: FDA-Public Use
  Company Number: PHHY2009IT40785

PATIENT
  Sex: Female

DRUGS (1)
  1. ZOMETA [Suspect]
     Indication: SKELETON DYSPLASIA
     Dosage: 4 MG, UNK
     Route: 042
     Dates: start: 20050101, end: 20071231

REACTIONS (3)
  - ABSCESS MANAGEMENT [None]
  - OSTEOMYELITIS [None]
  - SEQUESTRECTOMY [None]
